FAERS Safety Report 6315745-6 (Version None)
Quarter: 2009Q3

REPORT INFORMATION
  Report Type: 
  Country: None (occurrence: None)
  Receive Date: 20090819
  Receipt Date: 20090414
  Transmission Date: 20100115
  Serious: No
  Sender: FDA-Public Use
  Company Number: US-BAUSCH-2009BL001650

PATIENT
  Age: 79 Year
  Sex: Female

DRUGS (1)
  1. CROMOLYN SODIUM [Suspect]
     Indication: RHINITIS ALLERGIC
     Route: 045
     Dates: start: 19940101, end: 20090413

REACTIONS (4)
  - NASAL DISCOMFORT [None]
  - NASAL INFLAMMATION [None]
  - NAUSEA [None]
  - OESOPHAGEAL PAIN [None]
